FAERS Safety Report 10009699 (Version 1)
Quarter: 2014Q1

REPORT INFORMATION
  Report Type: Spontaneous
  Country: US (occurrence: US)
  Receive Date: 20140312
  Receipt Date: 20140312
  Transmission Date: 20141002
  Serious: No
  Sender: FDA-Public Use
  Company Number: US-INCYTE CORPORATION-2012IN002413

PATIENT
  Age: 79 Year
  Sex: Male

DRUGS (1)
  1. JAKAFI [Suspect]
     Dosage: 15 MG, BID
     Route: 048
     Dates: start: 20120926

REACTIONS (4)
  - Muscular weakness [Unknown]
  - Blood glucose increased [Unknown]
  - Chest discomfort [Unknown]
  - Red blood cell count decreased [Unknown]
